FAERS Safety Report 14217800 (Version 1)
Quarter: 2017Q4

REPORT INFORMATION
  Report Type: Spontaneous
  Country: US (occurrence: US)
  Receive Date: 20171123
  Receipt Date: 20171123
  Transmission Date: 20180321
  Serious: No
  Sender: FDA-Public Use
  Company Number: US-AMGEN-USASP2017175024

PATIENT
  Age: 46 Year
  Sex: Male
  Weight: 86.17 kg

DRUGS (1)
  1. ENBREL [Suspect]
     Active Substance: ETANERCEPT
     Indication: PSORIASIS
     Dosage: 50 MG, QWK
     Route: 058
     Dates: start: 201709

REACTIONS (4)
  - Injection site rash [Unknown]
  - Upper respiratory tract infection [Unknown]
  - Injection site pruritus [Unknown]
  - Cough [Unknown]

NARRATIVE: CASE EVENT DATE: 2017
